FAERS Safety Report 16346509 (Version 1)
Quarter: 2019Q2

REPORT INFORMATION
  Report Type: Spontaneous
  Country: CO (occurrence: CO)
  Receive Date: 20190523
  Receipt Date: 20190523
  Transmission Date: 20190711
  Serious: Yes (Other)
  Sender: FDA-Public Use
  Company Number: CO-ROCHE-2319867

PATIENT
  Age: 46 Year
  Sex: Female
  Weight: 74.5 kg

DRUGS (8)
  1. ANASTROZOLE. [Concomitant]
     Active Substance: ANASTROZOLE
     Route: 065
  2. CYCLOPHOSPHAMIDE. [Concomitant]
     Active Substance: CYCLOPHOSPHAMIDE
  3. DOXORUBICIN [Concomitant]
     Active Substance: DOXORUBICIN
  4. ZOLEDRONATE [Concomitant]
     Active Substance: ZOLEDRONIC ACID
     Route: 065
  5. PERJETA [Suspect]
     Active Substance: PERTUZUMAB
     Indication: INVASIVE DUCTAL BREAST CARCINOMA
     Route: 065
  6. DOCETAXEL. [Concomitant]
     Active Substance: DOCETAXEL
  7. PACLITAXEL. [Concomitant]
     Active Substance: PACLITAXEL
  8. HERCEPTIN [Suspect]
     Active Substance: TRASTUZUMAB
     Indication: INVASIVE DUCTAL BREAST CARCINOMA
     Route: 065

REACTIONS (3)
  - Gastrointestinal stromal tumour [Unknown]
  - Ejection fraction abnormal [Unknown]
  - Breast cancer metastatic [Unknown]

NARRATIVE: CASE EVENT DATE: 2008
